FAERS Safety Report 16332489 (Version 1)
Quarter: 2019Q2

REPORT INFORMATION
  Report Type: Spontaneous
  Country: FR (occurrence: FR)
  Receive Date: 20190520
  Receipt Date: 20190520
  Transmission Date: 20190711
  Serious: Yes (Hospitalization)
  Sender: FDA-Public Use
  Company Number: FR-TEVA-2019-FR-1051200

PATIENT
  Age: 72 Year
  Sex: Male
  Weight: 78 kg

DRUGS (11)
  1. KARDEGIC [Suspect]
     Active Substance: ASPIRIN DL-LYSINE
     Indication: MYOCARDIAL INFARCTION
     Route: 048
  2. CEFEPIME [Concomitant]
     Active Substance: CEFEPIME HYDROCHLORIDE
  3. LINEZOLIDE ARROW 600 MG, COMPRIM? PELLICUL? [Suspect]
     Active Substance: LINEZOLID
     Indication: BACTERIAL DISEASE CARRIER
     Route: 048
     Dates: start: 20190308, end: 20190328
  4. ACIDE FOLIQUE [Concomitant]
     Active Substance: FOLIC ACID
  5. ATORVASTATINE [Concomitant]
     Active Substance: ATORVASTATIN
  6. PANTOPRAZOLE [Concomitant]
     Active Substance: PANTOPRAZOLE
  7. CIPROFLOXACINE [Suspect]
     Active Substance: CIPROFLOXACIN
     Indication: BACTERIAL DISEASE CARRIER
     Route: 042
     Dates: start: 20190306, end: 20190317
  8. ULTRA-LEVURE 100 MG, POUDRE POUR SUSPENSION BUVABLE EN SACHET [Suspect]
     Active Substance: SACCHAROMYCES CEREVISIAE
     Indication: PROPHYLAXIS
     Route: 048
     Dates: start: 20190310, end: 20190320
  9. DOLIPRANE [Suspect]
     Active Substance: ACETAMINOPHEN
     Indication: PAIN
     Route: 048
     Dates: start: 20190309, end: 20190323
  10. BISOCE [Concomitant]
     Active Substance: BISOPROLOL
  11. FUROSEMIDE. [Concomitant]
     Active Substance: FUROSEMIDE

REACTIONS (4)
  - Epistaxis [Recovered/Resolved]
  - Leukopenia [Recovered/Resolved]
  - Anaemia [Recovered/Resolved]
  - Thrombocytopenia [Recovered/Resolved]

NARRATIVE: CASE EVENT DATE: 20190319
